FAERS Safety Report 19510477 (Version 1)
Quarter: 2021Q3

REPORT INFORMATION
  Report Type: Spontaneous
  Country: FR (occurrence: FR)
  Receive Date: 20210709
  Receipt Date: 20210709
  Transmission Date: 20211014
  Serious: Yes (Other)
  Sender: FDA-Public Use
  Company Number: FR-GLAXOSMITHKLINE-FR2021147845

PATIENT
  Age: 33 Year
  Sex: Female
  Weight: 54 kg

DRUGS (5)
  1. LAMICTAL [Suspect]
     Active Substance: LAMOTRIGINE
     Dosage: 300 MG (SINGLE TAKE)
     Route: 048
     Dates: start: 20210618
  2. LYRICA [Suspect]
     Active Substance: PREGABALIN
     Indication: MEDICATION ERROR
     Dosage: 200 MG, ((SINGLE TAKE))
     Route: 048
     Dates: start: 20210618
  3. LYRICA [Suspect]
     Active Substance: PREGABALIN
     Dosage: 200 MG (SINGLE TAKE)
     Route: 048
     Dates: start: 20210618
  4. SERESTA [Suspect]
     Active Substance: OXAZEPAM
     Indication: MEDICATION ERROR
     Dosage: 10 MG (SINGLE TAKE)
     Route: 048
     Dates: start: 20210618
  5. LAMICTAL [Suspect]
     Active Substance: LAMOTRIGINE
     Indication: MEDICATION ERROR
     Dosage: 300 MG (SINGLE TAKE)
     Route: 048
     Dates: start: 20210618

REACTIONS (3)
  - Vertigo [Unknown]
  - Diplopia [Unknown]
  - Somnolence [Unknown]

NARRATIVE: CASE EVENT DATE: 20210618
